FAERS Safety Report 5363691-7 (Version None)
Quarter: 2007Q2

REPORT INFORMATION
  Report Type: 
  Country: None (occurrence: None)
  Receive Date: 20070620
  Receipt Date: 20070606
  Transmission Date: 20071010
  Serious: Yes (Other)
  Sender: FDA-Public Use
  Company Number: GB-AVENTIS-200712589GDDC

PATIENT
  Age: 18 Year
  Sex: Female

DRUGS (2)
  1. RIFAMPICIN [Suspect]
     Indication: PSEUDOMONAS INFECTION
     Route: 048
     Dates: start: 20031128, end: 20031201
  2. CIPROFLOXACIN [Suspect]
     Indication: PSEUDOMONAS INFECTION
     Route: 048
     Dates: start: 20031128, end: 20031201

REACTIONS (7)
  - ACTIVATED PARTIAL THROMBOPLASTIN TIME PROLONGED [None]
  - BLOOD CREATININE INCREASED [None]
  - BLOOD UREA INCREASED [None]
  - COAGULOPATHY [None]
  - INTERNATIONAL NORMALISED RATIO INCREASED [None]
  - NEPHRITIS INTERSTITIAL [None]
  - VOMITING [None]
